FAERS Safety Report 15465266 (Version 1)
Quarter: 2018Q4

REPORT INFORMATION
  Report Type: Spontaneous
  Country: DE (occurrence: DE)
  Receive Date: 20181004
  Receipt Date: 20181004
  Transmission Date: 20190204
  Serious: Yes (Other)
  Sender: FDA-Public Use
  Company Number: DE-BAYER-2018-182214

PATIENT
  Age: 35 Year
  Sex: Female
  Weight: 73 kg

DRUGS (1)
  1. MIRENA [Suspect]
     Active Substance: LEVONORGESTREL
     Dosage: 20 MCG/24HR, CONT
     Route: 015

REACTIONS (12)
  - Menstruation irregular [Unknown]
  - Hot flush [Unknown]
  - Palpitations [Unknown]
  - Hair growth abnormal [Unknown]
  - Loss of consciousness [Recovered/Resolved]
  - Complication of device removal [Not Recovered/Not Resolved]
  - Head discomfort [Unknown]
  - Visual impairment [Unknown]
  - Migraine [Unknown]
  - Alopecia [Unknown]
  - Hypertension [Unknown]
  - Weight increased [Unknown]

NARRATIVE: CASE EVENT DATE: 20160718
